FAERS Safety Report 16335270 (Version 2)
Quarter: 2019Q2

REPORT INFORMATION
  Report Type: Report from Study
  Country: GB (occurrence: GB)
  Receive Date: 20190521
  Receipt Date: 20190527
  Transmission Date: 20190711
  Serious: Yes (Hospitalization)
  Sender: FDA-Public Use
  Company Number: GB-CELLTRION INC.-2019GB021158

PATIENT

DRUGS (6)
  1. TRUXIMA [Suspect]
     Active Substance: RITUXIMAB-ABBS
     Indication: DIFFUSE LARGE B-CELL LYMPHOMA
     Dosage: 800 MG, 3 WEEKLY
     Route: 042
     Dates: start: 20180501, end: 20180501
  2. TRUXIMA [Suspect]
     Active Substance: RITUXIMAB-ABBS
     Dosage: 800 MG, 3 WEEKLY
     Route: 042
     Dates: start: 20180522, end: 20180522
  3. TRUXIMA [Suspect]
     Active Substance: RITUXIMAB-ABBS
     Dosage: 800 MG, 3 WEEKLY
     Route: 042
     Dates: start: 20180612, end: 20180612
  4. TRUXIMA [Suspect]
     Active Substance: RITUXIMAB-ABBS
     Dosage: 800 MG, 3 WEEKLY
     Route: 042
     Dates: start: 20180814, end: 20180814
  5. TRUXIMA [Suspect]
     Active Substance: RITUXIMAB-ABBS
     Dosage: 800 MG, 3 WEEKLY
     Route: 042
     Dates: start: 20180703, end: 20180703
  6. TRUXIMA [Suspect]
     Active Substance: RITUXIMAB-ABBS
     Dosage: 800 MG, 3 WEEKLY
     Route: 042
     Dates: start: 20180824, end: 20180824

REACTIONS (2)
  - Steroid withdrawal syndrome [Recovering/Resolving]
  - Product use issue [Unknown]

NARRATIVE: CASE EVENT DATE: 20190226
